FAERS Safety Report 6792734-9 (Version None)
Quarter: 2010Q2

REPORT INFORMATION
  Report Type: 
  Country: None (occurrence: None)
  Receive Date: 20100624
  Receipt Date: 20081009
  Transmission Date: 20101027
  Serious: No
  Sender: FDA-Public Use
  Company Number: US-PFIZER INC-2008076292

PATIENT
  Age: 51 Year
  Sex: Female

DRUGS (4)
  1. GEODON [Suspect]
     Dates: start: 20080808
  2. ZYPREXA [Suspect]
  3. EFFEXOR [Concomitant]
  4. LAMICTAL [Concomitant]

REACTIONS (1)
  - INSOMNIA [None]
